FAERS Safety Report 4801898-5 (Version None)
Quarter: 2005Q4

REPORT INFORMATION
  Report Type: 
  Country: None (occurrence: None)
  Receive Date: 20051014
  Receipt Date: 20051014
  Transmission Date: 20060501
  Serious: Yes (Hospitalization)
  Sender: FDA-Public Use
  Company Number: None

PATIENT
  Age: 25 Year
  Sex: Female
  Weight: 65.7716 kg

DRUGS (2)
  1. LEXAPRO [Suspect]
     Indication: ANXIETY
     Dosage: 10MG ONCE DAILY PO
     Route: 048
     Dates: start: 20021201, end: 20050926
  2. LEXAPRO [Suspect]
     Indication: DEPRESSION
     Dosage: 10MG ONCE DAILY PO
     Route: 048
     Dates: start: 20021201, end: 20050926

REACTIONS (7)
  - DEHYDRATION [None]
  - DIZZINESS [None]
  - HALLUCINATION, AUDITORY [None]
  - HALLUCINATION, VISUAL [None]
  - NAUSEA [None]
  - NERVOUS SYSTEM DISORDER [None]
  - VOMITING [None]
